FAERS Safety Report 25956922 (Version 1)
Quarter: 2025Q4

REPORT INFORMATION
  Report Type: Spontaneous
  Country: US (occurrence: US)
  Receive Date: 20251024
  Receipt Date: 20251024
  Transmission Date: 20260118
  Serious: No
  Sender: VERTEX
  Company Number: US-VERTEX PHARMACEUTICALS-2025-017214

PATIENT
  Age: 81 Year
  Sex: Female

DRUGS (4)
  1. SUZETRIGINE [Suspect]
     Active Substance: SUZETRIGINE
     Indication: Neuralgia
     Dosage: SUZETRIGINE 50 MG
     Route: 048
     Dates: start: 202509, end: 202509
  2. SUZETRIGINE [Suspect]
     Active Substance: SUZETRIGINE
     Indication: Pain
  3. OMEPRAZOLE [Concomitant]
     Active Substance: OMEPRAZOLE
     Indication: Dyspepsia
     Dosage: UNK
  4. MINERALS\VITAMINS [Concomitant]
     Active Substance: MINERALS\VITAMINS
     Dosage: UNK

REACTIONS (2)
  - Loss of personal independence in daily activities [Not Recovered/Not Resolved]
  - Off label use [Unknown]

NARRATIVE: CASE EVENT DATE: 20250901
